FAERS Safety Report 10477233 (Version 1)
Quarter: 2014Q3

REPORT INFORMATION
  Report Type: Spontaneous
  Country: US (occurrence: US)
  Receive Date: 20140926
  Receipt Date: 20140926
  Transmission Date: 20150326
  Serious: Yes (Hospitalization, Other)
  Sender: FDA-Public Use
  Company Number: US-AMGEN-USASP2014073590

PATIENT
  Age: 53 Year
  Sex: Male

DRUGS (1)
  1. ENBREL [Suspect]
     Active Substance: ETANERCEPT
     Indication: RHEUMATOID ARTHRITIS
     Dosage: UNK UNK, QWK
     Route: 065
     Dates: start: 20111215, end: 201307

REACTIONS (3)
  - Aspergillus infection [Recovered/Resolved]
  - Sinus operation [Recovered/Resolved]
  - Palatal disorder [Recovered/Resolved]

NARRATIVE: CASE EVENT DATE: 20130703
